FAERS Safety Report 9321443 (Version 1)
Quarter: 2013Q2

REPORT INFORMATION
  Report Type: Spontaneous
  Country: OM (occurrence: OM)
  Receive Date: 20130531
  Receipt Date: 20130531
  Transmission Date: 20140414
  Serious: Yes (Hospitalization, Other)
  Sender: FDA-Public Use
  Company Number: OM-AMGEN-OMNSP2013038519

PATIENT
  Age: 12 Year
  Sex: Male

DRUGS (1)
  1. ENBREL [Suspect]
     Indication: PSORIASIS
     Dosage: 25 MG, ONCE WEEKLY
     Route: 058
     Dates: start: 201205, end: 201304

REACTIONS (6)
  - Headache [Unknown]
  - Dizziness [Unknown]
  - Lethargy [Unknown]
  - Vomiting [Unknown]
  - Otorrhoea [Unknown]
  - Staphylococcal infection [Unknown]
